FAERS Safety Report 4763906-X (Version None)
Quarter: 2005Q3

REPORT INFORMATION
  Report Type: 
  Country: None (occurrence: None)
  Receive Date: 20050906
  Receipt Date: 20050512
  Transmission Date: 20060218
  Serious: No
  Sender: FDA-Public Use
  Company Number: 2005-BP-07954BP

PATIENT
  Age: 62 Year
  Sex: Female
  Weight: 57.3 kg

DRUGS (10)
  1. SPIRIVA [Suspect]
     Indication: CHRONIC OBSTRUCTIVE PULMONARY DISEASE
     Dosage: 18 MCG (18 MCG QD) IH
     Route: 055
     Dates: start: 20040701, end: 20050405
  2. ADVAIR DISKUS 100/50 [Concomitant]
  3. ALBUTEROL [Concomitant]
  4. ALBUTEROL NEBULIZER (SALBUTAMOL) [Concomitant]
  5. AMBIEN [Concomitant]
  6. NEFAZODONE HCL [Concomitant]
  7. PREMARIN [Concomitant]
  8. ALPRAZOLAM [Concomitant]
  9. LISINOPRIL [Concomitant]
  10. NEXIUM [Concomitant]

REACTIONS (1)
  - DYSGEUSIA [None]
